FAERS Safety Report 25442044 (Version 2)
Quarter: 2025Q3

REPORT INFORMATION
  Report Type: Spontaneous
  Country: CL (occurrence: CL)
  Receive Date: 20250616
  Receipt Date: 20250822
  Transmission Date: 20251021
  Serious: Yes (Hospitalization)
  Sender: BIOMARIN
  Company Number: CL-BIOMARINAP-CL-2025-166592

PATIENT
  Age: 9 Year
  Sex: Female
  Weight: 13 kg

DRUGS (1)
  1. NAGLAZYME [Suspect]
     Active Substance: GALSULFASE
     Indication: Mucopolysaccharidosis VI
     Dosage: UNK, QW

REACTIONS (1)
  - Catheter placement [Recovered/Resolved]

NARRATIVE: CASE EVENT DATE: 20250610
